FAERS Safety Report 12495712 (Version 1)
Quarter: 2016Q2

REPORT INFORMATION
  Report Type: Spontaneous
  Country: US (occurrence: US)
  Receive Date: 20160624
  Receipt Date: 20160624
  Transmission Date: 20160815
  Serious: Yes (Hospitalization)
  Sender: FDA-Public Use
  Company Number: US-TARO PHARMACEUTICALS USA.,INC-2016SUN00331

PATIENT
  Age: 60 Year
  Sex: Male

DRUGS (6)
  1. LINEUM USITATISSIMUM [Concomitant]
  2. CURCUMA LONG [Concomitant]
  3. TEMOZOLOMIDE. [Interacting]
     Active Substance: TEMOZOLOMIDE
     Indication: GLIOBLASTOMA MULTIFORME
     Dosage: 150 MG, QD
     Route: 065
  4. SILYBUM MARIANUM [Concomitant]
     Active Substance: MILK THISTLE
  5. LEVETIRACETAM. [Suspect]
     Active Substance: LEVETIRACETAM
     Indication: GENERALISED TONIC-CLONIC SEIZURE
     Dosage: UNK
     Route: 065
  6. FUMARIACEAE [Concomitant]

REACTIONS (3)
  - Drug-induced liver injury [Recovered/Resolved]
  - Hepatic failure [Recovered/Resolved]
  - Drug interaction [Unknown]
